FAERS Safety Report 8896078 (Version 1)
Quarter: 2012Q4

REPORT INFORMATION
  Report Type: 
  Country: US (occurrence: US)
  Receive Date: 20121108
  Receipt Date: 20121108
  Transmission Date: 20130627
  Serious: Yes (Death)
  Sender: FDA-Public Use
  Company Number: US-ROCHE-1093517

PATIENT
  Sex: Female

DRUGS (4)
  1. RITUXAN [Suspect]
     Indication: IDIOPATHIC THROMBOCYTOPENIC PURPURA
     Route: 065
  2. RITUXAN [Suspect]
     Indication: IDIOPATHIC THROMBOCYTOPENIC PURPURA
  3. RITUXAN [Suspect]
     Indication: PLATELET DISORDER
  4. RITUXAN [Suspect]
     Indication: OFF LABEL USE

REACTIONS (1)
  - Death [Fatal]
